FAERS Safety Report 4650616-2 (Version None)
Quarter: 2005Q2

REPORT INFORMATION
  Report Type: 
  Country: None (occurrence: None)
  Receive Date: 20050428
  Receipt Date: 20050428
  Transmission Date: 20051028
  Serious: No
  Sender: FDA-Public Use
  Company Number: None

PATIENT
  Sex: Male
  Weight: 78 kg

DRUGS (8)
  1. ALLOPURINOL [Suspect]
     Indication: ACUTE LYMPHOCYTIC LEUKAEMIA
     Dosage: 300 MG PO QD ON DAYS 1-14
     Route: 048
     Dates: start: 20050217
  2. CYCLOPHOSPHAMIDE [Suspect]
     Dosage: SEE IMAGE
     Route: 042
  3. DAUNORUBICIN [Suspect]
     Dosage: 80 MG/M2/DAY X 3 DAYS IV ON DAYS 1,2,3.
     Route: 042
  4. VINCRISTINE [Suspect]
     Dosage: SEE IMAGE
     Route: 042
  5. DEXAMETHASONE [Suspect]
     Dosage: SEE IMAGE
     Route: 047
  6. L-ASPARAGINASE [Suspect]
     Dosage: SEE IMAGE
     Route: 058
  7. NEUPOGEN [Suspect]
     Dosage: SEE IMAGE
     Route: 058
  8. ZOLEDRONIC ACID [Concomitant]

REACTIONS (3)
  - BLOOD CALCIUM DECREASED [None]
  - HYPERCALCAEMIA [None]
  - HYPOPHOSPHATAEMIA [None]
